FAERS Safety Report 6832339-4 (Version None)
Quarter: 2010Q3

REPORT INFORMATION
  Report Type: 
  Country: None (occurrence: None)
  Receive Date: 20100712
  Receipt Date: 20100630
  Transmission Date: 20110219
  Serious: Yes (Other)
  Sender: FDA-Public Use
  Company Number: US-PFIZER INC-2010054463

PATIENT
  Sex: Female
  Weight: 83.9 kg

DRUGS (4)
  1. CHANTIX [Suspect]
     Indication: SMOKING CESSATION THERAPY
     Dosage: 0.5 MG, 1X/DAY
     Route: 048
     Dates: start: 20100428
  2. DEPAKOTE [Suspect]
     Indication: MOOD SWINGS
     Dosage: UNK
     Dates: start: 20100101
  3. CLONAZEPAM [Concomitant]
     Indication: ANXIETY
     Dosage: UNK
  4. CENTRUM SILVER [Concomitant]
     Indication: VITAMIN SUPPLEMENTATION
     Dosage: UNK

REACTIONS (22)
  - ABDOMINAL PAIN UPPER [None]
  - ABNORMAL DREAMS [None]
  - AGGRESSION [None]
  - AGITATION [None]
  - ANGER [None]
  - ANXIETY [None]
  - CRYING [None]
  - DEPRESSED MOOD [None]
  - EMOTIONAL DISORDER [None]
  - FEAR [None]
  - FEELING ABNORMAL [None]
  - HOSTILITY [None]
  - MENORRHAGIA [None]
  - MOOD ALTERED [None]
  - NAUSEA [None]
  - NON-CONSUMMATION [None]
  - PAROSMIA [None]
  - PHOBIA [None]
  - PSYCHIATRIC SYMPTOM [None]
  - SCREAMING [None]
  - STRESS [None]
  - WEIGHT INCREASED [None]
